FAERS Safety Report 4851898-4 (Version None)
Quarter: 2005Q4

REPORT INFORMATION
  Report Type: 
  Country: None (occurrence: None)
  Receive Date: 20051213
  Receipt Date: 20051207
  Transmission Date: 20060501
  Serious: Yes (Other)
  Sender: FDA-Public Use
  Company Number: JP-AVENTIS-200513719JP

PATIENT
  Age: 50 Year
  Sex: Male

DRUGS (14)
  1. ARAVA [Suspect]
     Indication: RHEUMATOID ARTHRITIS
     Route: 048
     Dates: start: 20031009, end: 20031206
  2. ASPIRIN [Concomitant]
     Indication: THROMBOSIS PROPHYLAXIS
     Route: 048
  3. ISCOTIN [Concomitant]
     Indication: DISSEMINATED TUBERCULOSIS
     Route: 048
  4. ACECOL [Concomitant]
     Indication: HYPERTENSION
     Route: 048
  5. SELECTOL [Concomitant]
     Indication: HYPERTENSION
     Route: 048
  6. PROMAC                                  /JPN/ [Concomitant]
     Indication: PROPHYLAXIS AGAINST GASTROINTESTINAL ULCER
     Route: 048
  7. ACINON [Concomitant]
     Indication: PROPHYLAXIS AGAINST GASTROINTESTINAL ULCER
     Route: 048
  8. BONALON [Concomitant]
     Indication: OSTEOPOROSIS
     Route: 048
  9. PURSENNID [Concomitant]
     Indication: CONSTIPATION
     Route: 048
  10. DORAL [Concomitant]
     Indication: INSOMNIA
     Route: 048
  11. COTRIM [Concomitant]
     Indication: INFECTION PROPHYLAXIS
     Dosage: DOSE: 1TABLET
     Route: 048
  12. MAGNESIUM OXIDE [Concomitant]
     Indication: CONSTIPATION
     Route: 048
  13. LEXOTAN [Concomitant]
     Indication: NEUROSIS
     Route: 048
  14. PREDNISOLONE [Concomitant]
     Indication: RHEUMATOID ARTHRITIS
     Route: 048

REACTIONS (4)
  - ALANINE AMINOTRANSFERASE INCREASED [None]
  - ASPARTATE AMINOTRANSFERASE INCREASED [None]
  - GASTRIC ULCER [None]
  - IRON DEFICIENCY ANAEMIA [None]
